FAERS Safety Report 12093418 (Version 1)
Quarter: 2016Q1

REPORT INFORMATION
  Report Type: Spontaneous
  Country: US (occurrence: None)
  Receive Date: 20160218
  Receipt Date: 20160218
  Transmission Date: 20160526
  Serious: No
  Sender: FDA-Public Use
  Company Number: None

PATIENT
  Sex: Male

DRUGS (3)
  1. KETAMINE HCL KETAMINE [Suspect]
     Active Substance: KETAMINE HYDROCHLORIDE
  2. KETOROLAC [Suspect]
     Active Substance: KETOROLAC\KETOROLAC TROMETHAMINE
  3. KETOROLAC [Suspect]
     Active Substance: KETOROLAC\KETOROLAC TROMETHAMINE

REACTIONS (3)
  - Wrong technique in product usage process [None]
  - Product selection error [None]
  - Wrong drug administered [None]
